FAERS Safety Report 14785579 (Version 2)
Quarter: 2018Q2

REPORT INFORMATION
  Report Type: Spontaneous
  Country: CA (occurrence: CA)
  Receive Date: 20180420
  Receipt Date: 20180430
  Transmission Date: 20180711
  Serious: Yes (Other)
  Sender: FDA-Public Use
  Company Number: CA-PFIZER INC-2018157962

PATIENT
  Age: 39 Year
  Sex: Female

DRUGS (2)
  1. NOREPINEPHRINE BITARTRATE. [Suspect]
     Active Substance: NOREPINEPHRINE BITARTRATE
     Indication: BLOOD PRESSURE MANAGEMENT
     Dosage: 0.02 UG/KG, UNK (0.02 MCG/KG/MIN)
  2. NOREPINEPHRINE BITARTRATE. [Suspect]
     Active Substance: NOREPINEPHRINE BITARTRATE
     Dosage: 0.22 UG/KG, UNK (INCREASED TO 0.22MCG/KG/MIN)

REACTIONS (3)
  - Cerebral ischaemia [Unknown]
  - Cerebral vasoconstriction [Unknown]
  - Condition aggravated [Unknown]
